FAERS Safety Report 9150434 (Version 1)
Quarter: 2013Q1

REPORT INFORMATION
  Report Type: Spontaneous
  Country: US (occurrence: None)
  Receive Date: 20130204
  Receipt Date: 20130204
  Transmission Date: 20140127
  Serious: Yes (Other)
  Sender: FDA-Public Use
  Company Number: 2013-00140

PATIENT
  Age: 45 Year
  Sex: Male

DRUGS (2)
  1. QUETIAPINE (UNKNOWN) [Suspect]
     Indication: DEPRESSION
  2. PAROXETINE [Suspect]

REACTIONS (4)
  - Homicide [None]
  - Agitation [None]
  - Depression [None]
  - Insomnia [None]
